FAERS Safety Report 16814690 (Version 1)
Quarter: 2019Q3

REPORT INFORMATION
  Report Type: Spontaneous
  Country: US (occurrence: US)
  Receive Date: 20190917
  Receipt Date: 20190917
  Transmission Date: 20191005
  Serious: No
  Sender: FDA-Public Use
  Company Number: US-ACCORD-110395

PATIENT
  Sex: Male

DRUGS (1)
  1. GLIMEPIRIDE ACCORD [Suspect]
     Active Substance: GLIMEPIRIDE
     Indication: TYPE 2 DIABETES MELLITUS
     Dosage: STRENGTH: 1 MG DAILY
     Dates: start: 20181220

REACTIONS (2)
  - Blood glucose increased [Unknown]
  - Product quality issue [Unknown]
